FAERS Safety Report 17150948 (Version 1)
Quarter: 2019Q4

REPORT INFORMATION
  Report Type: Report from Study
  Country: JP (occurrence: JP)
  Receive Date: 20191213
  Receipt Date: 20191213
  Transmission Date: 20200122
  Serious: Yes (Other)
  Sender: FDA-Public Use
  Company Number: JP-ROCHE-2494718

PATIENT

DRUGS (2)
  1. PIRFENIDONE. [Suspect]
     Active Substance: PIRFENIDONE
     Indication: IDIOPATHIC PULMONARY FIBROSIS
     Route: 048
  2. PIRFENIDONE. [Suspect]
     Active Substance: PIRFENIDONE
     Route: 048

REACTIONS (6)
  - Rash [Unknown]
  - Supraventricular tachycardia [Unknown]
  - Wound [Unknown]
  - Photosensitivity reaction [Unknown]
  - Decreased appetite [Unknown]
  - Pulmonary fistula [Unknown]
